FAERS Safety Report 20564377 (Version 4)
Quarter: 2022Q1

REPORT INFORMATION
  Report Type: Report from Study
  Country: AU (occurrence: AU)
  Receive Date: 20220308
  Receipt Date: 20220323
  Transmission Date: 20220423
  Serious: Yes (Death, Hospitalization)
  Sender: FDA-Public Use
  Company Number: AU-JNJFOC-20211146117

PATIENT
  Age: 38 Year
  Sex: Female

DRUGS (11)
  1. SPRAVATO [Suspect]
     Active Substance: ESKETAMINE
     Indication: Depression
     Dosage: INDUCTION TREATMENT - INPATIENT TREATMENT
     Dates: start: 20211105, end: 20211129
  2. SPRAVATO [Suspect]
     Active Substance: ESKETAMINE
     Dosage: OUTPATIENT VISITS
     Dates: start: 202112, end: 20220203
  3. SPRAVATO [Suspect]
     Active Substance: ESKETAMINE
     Dosage: LAST TREATMENT-WHILE IS HOSPITAL
     Dates: start: 20220221, end: 20220221
  4. BRINTELLIX [Concomitant]
     Active Substance: VORTIOXETINE HYDROBROMIDE
     Dosage: STARTED IN NOVEMBER AND SHE WAS TITRATED FROM 5MG TO 30MG AND THEN WEANED DOWN.
     Route: 065
     Dates: start: 202111
  5. DULOXETINE [Concomitant]
     Active Substance: DULOXETINE
     Dosage: ONLY HAD 2 DAYS TREATMENTS WITH THIS.
     Route: 065
  6. LAMOTRIGINE [Concomitant]
     Active Substance: LAMOTRIGINE
     Dosage: NOCTE
     Route: 065
  7. QUETIAPINE [Concomitant]
     Active Substance: QUETIAPINE
     Dosage: NOCTE
     Route: 065
  8. QUETIAPINE [Concomitant]
     Active Substance: QUETIAPINE
     Route: 065
  9. PROPRANOLOL [Concomitant]
     Active Substance: PROPRANOLOL HYDROCHLORIDE
     Indication: Panic attack
     Route: 065
  10. LISDEXAMFETAMINE [Concomitant]
     Active Substance: LISDEXAMFETAMINE
     Indication: Attention deficit hyperactivity disorder
     Route: 065
  11. CLONAZEPAM [Concomitant]
     Active Substance: CLONAZEPAM
     Route: 065

REACTIONS (3)
  - Suicide attempt [Fatal]
  - Depression [Fatal]
  - Dissociation [Recovered/Resolved]

NARRATIVE: CASE EVENT DATE: 20220224
